FAERS Safety Report 5781078-X (Version None)
Quarter: 2008Q2

REPORT INFORMATION
  Report Type: 
  Country: None (occurrence: None)
  Receive Date: 20080618
  Receipt Date: 20080605
  Transmission Date: 20081010
  Serious: Yes (Hospitalization)
  Sender: FDA-Public Use
  Company Number: TRP_05760_2008

PATIENT
  Age: 50 Year
  Sex: Male

DRUGS (4)
  1. RIBAVIRIN [Suspect]
     Indication: HEPATITIS C
     Dosage: (BID ORAL)
     Route: 048
  2. INFERGEN [Suspect]
     Indication: HEPATITIS C
     Dosage: (15 ?G 3X/WEEK SUBCUTANEOUS)
     Route: 058
  3. NIFEDIPINE [Concomitant]
  4. TERAZOSIN HCL [Concomitant]

REACTIONS (7)
  - ABDOMINAL PAIN [None]
  - ANOREXIA [None]
  - DIABETES MELLITUS [None]
  - DIABETIC KETOACIDOSIS [None]
  - HYPOGLYCAEMIA [None]
  - NAUSEA [None]
  - WEIGHT DECREASED [None]
